FAERS Safety Report 22282141 (Version 2)
Quarter: 2024Q1

REPORT INFORMATION
  Report Type: Report from Study
  Country: US (occurrence: US)
  Receive Date: 20230504
  Receipt Date: 20240311
  Transmission Date: 20240410
  Serious: Yes (Other)
  Sender: FDA-Public Use
  Company Number: US-ABBVIE-4747927

PATIENT
  Sex: Female

DRUGS (1)
  1. IMBRUVICA [Suspect]
     Active Substance: IBRUTINIB
     Indication: Chronic lymphocytic leukaemia
     Route: 048
     Dates: start: 20181012

REACTIONS (4)
  - Productive cough [Not Recovered/Not Resolved]
  - Metal poisoning [Unknown]
  - Seasonal allergy [Unknown]
  - Nail disorder [Unknown]
